FAERS Safety Report 9210328 (Version 1)
Quarter: 2013Q2

REPORT INFORMATION
  Report Type: Spontaneous
  Country: DE (occurrence: DE)
  Receive Date: 20130404
  Receipt Date: 20130404
  Transmission Date: 20140414
  Serious: Yes (Death)
  Sender: FDA-Public Use
  Company Number: DE-CELGENEUS-062-21880-13033686

PATIENT
  Age: 76 Year
  Sex: Male

DRUGS (5)
  1. REVLIMID [Suspect]
     Indication: PRODUCT USED FOR UNKNOWN INDICATION
     Route: 048
     Dates: start: 201210
  2. REVLIMID [Suspect]
     Route: 048
     Dates: start: 201303
  3. THALIDOMIDE CELGENE [Suspect]
     Indication: PRODUCT USED FOR UNKNOWN INDICATION
     Route: 048
     Dates: start: 201112
  4. THALIDOMIDE CELGENE [Suspect]
     Route: 048
     Dates: start: 201203
  5. THALIDOMIDE CELGENE [Suspect]
     Route: 048
     Dates: start: 201206

REACTIONS (1)
  - Death [Fatal]
